FAERS Safety Report 8832834 (Version 2)
Quarter: 2012Q4

REPORT INFORMATION
  Report Type: 
  Country: CA (occurrence: CA)
  Receive Date: 20121010
  Receipt Date: 20121018
  Transmission Date: 20130627
  Serious: Yes (Other)
  Sender: FDA-Public Use
  Company Number: CA-AMGEN-CANSP2012063610

PATIENT
  Age: 54 Year
  Sex: Female
  Weight: 58 kg

DRUGS (6)
  1. NEUPOGEN [Suspect]
     Indication: CHEMOTHERAPY
     Dosage: 300 mug, UNK
     Route: 058
     Dates: start: 20121002, end: 20121005
  2. CYCLOPHOSPHAMIDE [Concomitant]
     Indication: BREAST CANCER
     Dosage: 967 mg, q2wk
     Route: 042
     Dates: start: 20121001, end: 20121001
  3. VENTOLIN                           /00139501/ [Concomitant]
     Dosage: UNK UNK, prn
  4. ONDANSETRON [Concomitant]
     Indication: PROPHYLAXIS
     Dosage: 8 mg, UNK
     Route: 048
     Dates: start: 20121001, end: 20121003
  5. DEXAMETHASONE [Concomitant]
     Indication: PROPHYLAXIS
     Dosage: 10 mg, UNK
     Route: 042
     Dates: start: 20121001, end: 20121003
  6. DOXORUBEN [Concomitant]
     Dosage: 97 mg, q2wk
     Route: 042
     Dates: start: 20121001, end: 20121001

REACTIONS (5)
  - Dizziness [Recovered/Resolved]
  - Blood pressure decreased [Recovered/Resolved]
  - Dyspnoea [Recovered/Resolved]
  - Oxygen saturation decreased [Recovered/Resolved]
  - Cough [Recovered/Resolved]
